FAERS Safety Report 9787058 (Version 2)
Quarter: 2014Q1

REPORT INFORMATION
  Report Type: Report from Study
  Country: US (occurrence: US)
  Receive Date: 20131227
  Receipt Date: 20140225
  Transmission Date: 20141002
  Serious: Yes (Death, Other)
  Sender: FDA-Public Use
  Company Number: US-ROCHE-1327010

PATIENT
  Sex: Male

DRUGS (19)
  1. CELLCEPT [Suspect]
     Indication: LIVER TRANSPLANT
     Dosage: 1 CAP BID
     Route: 065
  2. CELLCEPT [Suspect]
     Indication: IMMUNOSUPPRESSION
     Route: 065
     Dates: end: 20120811
  3. CELLCEPT [Suspect]
     Route: 065
  4. ASPIRIN [Concomitant]
     Route: 048
     Dates: start: 20070917
  5. NEXIUM [Concomitant]
     Route: 048
     Dates: start: 20110908
  6. NEXIUM [Concomitant]
     Route: 065
  7. STARLIX [Concomitant]
     Route: 065
     Dates: start: 20081028
  8. STARLIX [Concomitant]
     Route: 065
  9. NORVASK [Concomitant]
     Route: 048
     Dates: start: 20110908
  10. LEVEMIR [Concomitant]
     Dosage: 20 IN THE MORNING AND 15 IN THE EVENING
     Route: 065
     Dates: start: 20090928
  11. CATAPRES [Concomitant]
     Route: 065
     Dates: start: 20120913
  12. URSO FORTE [Concomitant]
     Route: 065
  13. RAPAMUNE [Concomitant]
     Route: 048
     Dates: start: 20121130
  14. VALTREX [Concomitant]
     Route: 065
  15. AMLODIPINE [Concomitant]
     Route: 065
  16. PROGRAF [Concomitant]
     Route: 065
  17. FLOMAX (UNITED STATES) [Concomitant]
     Route: 065
  18. AUGMENTIN [Concomitant]
     Route: 065
  19. ULTRAM [Concomitant]
     Indication: PAIN
     Dosage: ONE TO TWO EVERY 4 HOURS AS NEEDED
     Route: 065

REACTIONS (18)
  - Death [Fatal]
  - Renal failure acute [Recovered/Resolved]
  - Pyrexia [Unknown]
  - Productive cough [Unknown]
  - Weight increased [Unknown]
  - Abdominal pain [Unknown]
  - Discomfort [Unknown]
  - Neuropathy peripheral [Unknown]
  - Dysuria [Unknown]
  - Fluid retention [Unknown]
  - Diarrhoea [Unknown]
  - Back pain [Unknown]
  - Rash [Unknown]
  - Sleep disorder [Unknown]
  - Fall [Unknown]
  - Loss of consciousness [Unknown]
  - Leukopenia [Unknown]
  - Post herpetic neuralgia [Unknown]
